FAERS Safety Report 4745701-0 (Version None)
Quarter: 2005Q3

REPORT INFORMATION
  Report Type: 
  Country: None (occurrence: None)
  Receive Date: 20050816
  Receipt Date: 19990111
  Transmission Date: 20060218
  Serious: Yes (Hospitalization)
  Sender: FDA-Public Use
  Company Number: US90-06197

PATIENT
  Sex: Male

DRUGS (5)
  1. DOCETAXEL [Suspect]
     Indication: LARYNGEAL CANCER
     Route: 042
     Dates: start: 20000103, end: 20000103
  2. CISPLATIN [Suspect]
     Indication: LARYNGEAL CANCER
     Route: 042
     Dates: start: 20000103, end: 20000103
  3. DECADRON [Concomitant]
  4. MANNITOL [Concomitant]
  5. MANNITOL [Concomitant]

REACTIONS (5)
  - DEHYDRATION [None]
  - FISTULA [None]
  - LARYNGEAL CANCER [None]
  - MALIGNANT NEOPLASM PROGRESSION [None]
  - RENAL FAILURE [None]
